FAERS Safety Report 24961588 (Version 1)
Quarter: 2025Q1

REPORT INFORMATION
  Report Type: Spontaneous
  Country: US (occurrence: None)
  Receive Date: 20250212
  Receipt Date: 20250212
  Transmission Date: 20250409
  Serious: Yes (Other)
  Sender: FDA-CTU
  Company Number: None

PATIENT
  Age: 71 Year
  Sex: Male
  Weight: 85 kg

DRUGS (2)
  1. CARVYKTI [Suspect]
     Active Substance: CILTACABTAGENE AUTOLEUCEL
     Indication: Plasma cell myeloma refractory
     Route: 042
     Dates: start: 20241008, end: 20241008
  2. CARVYKTI [Suspect]
     Active Substance: CILTACABTAGENE AUTOLEUCEL
     Indication: Light chain analysis increased

REACTIONS (10)
  - Lymphocyte adoptive therapy [None]
  - Cytokine release syndrome [None]
  - Immune effector cell-associated HLH-like syndrome [None]
  - Liver function test increased [None]
  - Serum ferritin increased [None]
  - Acute kidney injury [None]
  - Bell^s palsy [None]
  - Gait disturbance [None]
  - Rhinorrhoea [None]
  - Parkinson^s disease [None]

NARRATIVE: CASE EVENT DATE: 20250212
